FAERS Safety Report 19485215 (Version 1)
Quarter: 2021Q3

REPORT INFORMATION
  Report Type: Spontaneous
  Country: FR (occurrence: FR)
  Receive Date: 20210702
  Receipt Date: 20210702
  Transmission Date: 20211014
  Serious: Yes (Other)
  Sender: FDA-Public Use
  Company Number: FR-BEH-2021133433

PATIENT
  Age: 43 Year
  Sex: Male
  Weight: 71 kg

DRUGS (5)
  1. PRIVIGEN [Suspect]
     Active Substance: HUMAN IMMUNOGLOBULIN G
     Indication: POLYNEUROPATHY
     Dosage: 10 GRAM (140 G ON 5 DAYS INCLUDING 2 VIALS OF 5G)
     Route: 041
     Dates: start: 20201212, end: 20201216
  2. PRIVIGEN [Suspect]
     Active Substance: HUMAN IMMUNOGLOBULIN G
     Dosage: 100 GRAM (140G ON 5 DAYS INCLUDING 5 VIALS OF 20 G)
     Route: 041
     Dates: start: 20201212, end: 20201216
  3. PRIVIGEN [Suspect]
     Active Substance: HUMAN IMMUNOGLOBULIN G
     Dosage: 100 GRAM (140 G ON 5 DAYS INCLUDING 5 VIALS OF 20 G)
     Route: 041
     Dates: start: 20210529, end: 20210602
  4. PRIVIGEN [Suspect]
     Active Substance: HUMAN IMMUNOGLOBULIN G
     Dosage: 30 GRAM (140 G ON 5 DAYS INCLUDING 3 VIALS OF 10 G)
     Route: 041
     Dates: start: 20201212, end: 20201216
  5. PRIVIGEN [Suspect]
     Active Substance: HUMAN IMMUNOGLOBULIN G
     Dosage: 40 GRAM (140 G ON 5 DAYS INCLUDING 4 VIALS OF 10 G)
     Route: 041
     Dates: start: 20210529, end: 20210602

REACTIONS (1)
  - Dermatitis bullous [Recovered/Resolved]

NARRATIVE: CASE EVENT DATE: 20210111
